FAERS Safety Report 7092808-1 (Version None)
Quarter: 2010Q4

REPORT INFORMATION
  Report Type: 
  Country: None (occurrence: None)
  Receive Date: 20101110
  Receipt Date: 20101103
  Transmission Date: 20110411
  Serious: No
  Sender: FDA-Public Use
  Company Number: US-PFIZER INC-2010140311

PATIENT
  Sex: Female

DRUGS (5)
  1. LYRICA [Suspect]
     Indication: FIBROMYALGIA
     Dosage: 75 MG, 2X/DAY
     Route: 048
     Dates: start: 20050101
  2. LYRICA [Suspect]
     Dosage: 150 MG, 2X/DAY
     Dates: start: 20100913
  3. METOPROLOL [Concomitant]
     Indication: HEART RATE INCREASED
     Dosage: UNK
  4. ALLEGRA [Concomitant]
     Indication: HYPERSENSITIVITY
     Dosage: UNK
  5. AMBIEN [Concomitant]
     Indication: SLEEP DISORDER
     Dosage: UNK

REACTIONS (1)
  - HYPERTRICHOSIS [None]
